FAERS Safety Report 10913332 (Version 1)
Quarter: 2015Q1

REPORT INFORMATION
  Report Type: Spontaneous
  Country: US (occurrence: None)
  Receive Date: 20150309
  Receipt Date: 20150309
  Transmission Date: 20150721
  Serious: No
  Sender: FDA-Public Use
  Company Number: US-20140013

PATIENT
  Age: 55 Year
  Sex: Female

DRUGS (1)
  1. DOTAREM [Suspect]
     Active Substance: GADOTERATE MEGLUMINE
     Indication: NUCLEAR MAGNETIC RESONANCE IMAGING
     Dosage: NOT OTHERWISE SPECIFIED
     Route: 042
     Dates: start: 20140819, end: 20140819

REACTIONS (2)
  - Dysphagia [None]
  - Oropharyngeal swelling [None]

NARRATIVE: CASE EVENT DATE: 20140819
